FAERS Safety Report 18484020 (Version 1)
Quarter: 2020Q4

REPORT INFORMATION
  Report Type: Report from Study
  Country: None (occurrence: US)
  Receive Date: 20201109
  Receipt Date: 20201109
  Transmission Date: 20210114
  Serious: Yes (Hospitalization, Other)
  Sender: FDA-Public Use
  Company Number: US-ABBVIE-19K-163-2822342-00

PATIENT
  Age: 68 Year
  Sex: Female
  Weight: 104.42 kg

DRUGS (55)
  1. HUMIRA [Suspect]
     Active Substance: ADALIMUMAB
     Indication: PSORIASIS
     Dosage: CITRATE FREE
     Route: 058
     Dates: start: 201801, end: 20190326
  2. HUMIRA [Suspect]
     Active Substance: ADALIMUMAB
     Dosage: CITRATE FREE
     Route: 058
  3. DICLOFENAC SODIUM. [Concomitant]
     Active Substance: DICLOFENAC SODIUM
     Indication: BACK PAIN
  4. PRILOSEC [Concomitant]
     Active Substance: OMEPRAZOLE MAGNESIUM
     Indication: IMPAIRED GASTRIC EMPTYING
  5. TRIAMCINOLONE ACETONIDE. [Concomitant]
     Active Substance: TRIAMCINOLONE ACETONIDE
     Indication: ANXIETY
  6. TURMERIC [Concomitant]
     Active Substance: HERBALS\TURMERIC
     Indication: SUPPLEMENTATION THERAPY
  7. TYLENOL [Concomitant]
     Active Substance: ACETAMINOPHEN
     Indication: ARTHRALGIA
  8. FLONASE [Concomitant]
     Active Substance: FLUTICASONE PROPIONATE
     Indication: SEASONAL ALLERGY
  9. HUMIRA [Suspect]
     Active Substance: ADALIMUMAB
     Dosage: CITRATE FREE
     Route: 058
     Dates: start: 20201023
  10. AMITRIPTYLINE [Concomitant]
     Active Substance: AMITRIPTYLINE
     Indication: DEPRESSION
  11. AMITRIPTYLINE [Concomitant]
     Active Substance: AMITRIPTYLINE
     Indication: ANXIETY
  12. HYOSCYAMINE. [Concomitant]
     Active Substance: HYOSCYAMINE
     Indication: IRRITABLE BOWEL SYNDROME
  13. HYOSCYAMINE. [Concomitant]
     Active Substance: HYOSCYAMINE
     Indication: ANXIETY
  14. IRON [Concomitant]
     Active Substance: IRON
     Indication: MINERAL SUPPLEMENTATION
  15. TYLENOL PM [Concomitant]
     Active Substance: ACETAMINOPHEN\DIPHENHYDRAMINE
     Indication: ANXIETY
  16. FLONASE [Concomitant]
     Active Substance: FLUTICASONE PROPIONATE
     Indication: ANXIETY
  17. VITAMIN B12 [Concomitant]
     Active Substance: CYANOCOBALAMIN
     Indication: ANXIETY
  18. VITAMIN C [Concomitant]
     Active Substance: ASCORBIC ACID
     Indication: VITAMIN SUPPLEMENTATION
  19. PROBIOTIC [Concomitant]
     Active Substance: PROBIOTICS NOS
     Indication: ANXIETY
  20. HUMIRA [Suspect]
     Active Substance: ADALIMUMAB
     Indication: PSORIATIC ARTHROPATHY
     Dosage: CITRATE FREE
     Route: 058
     Dates: start: 20190424, end: 201908
  21. HUMIRA [Suspect]
     Active Substance: ADALIMUMAB
     Dosage: CITRATE FREE
     Route: 058
     Dates: start: 201909, end: 202009
  22. LOVASTATIN. [Concomitant]
     Active Substance: LOVASTATIN
     Indication: ANXIETY
  23. TURMERIC [Concomitant]
     Active Substance: HERBALS\TURMERIC
     Indication: ANXIETY
  24. MIRALAX [Concomitant]
     Active Substance: POLYETHYLENE GLYCOL 3350
     Indication: CONSTIPATION
  25. MULTIVITAMIN [Concomitant]
     Active Substance: VITAMINS
     Indication: VITAMIN SUPPLEMENTATION
  26. PRILOSEC [Concomitant]
     Active Substance: OMEPRAZOLE MAGNESIUM
     Indication: DIVERTICULUM
  27. MIRALAX [Concomitant]
     Active Substance: POLYETHYLENE GLYCOL 3350
     Indication: ANXIETY
  28. MULTIVITAMIN [Concomitant]
     Active Substance: VITAMINS
     Indication: ANXIETY
  29. GAS-X [Concomitant]
     Active Substance: DIMETHICONE
     Indication: SUPPLEMENTATION THERAPY
  30. DICLOFENAC [Concomitant]
     Active Substance: DICLOFENAC
     Indication: PSORIATIC ARTHROPATHY
  31. AMITRIPTYLINE [Concomitant]
     Active Substance: AMITRIPTYLINE
     Indication: ANXIETY
  32. TYLENOL [Concomitant]
     Active Substance: ACETAMINOPHEN
     Indication: ANXIETY
  33. IBUPROFEN. [Concomitant]
     Active Substance: IBUPROFEN
     Indication: ARTHRALGIA
  34. IBUPROFEN. [Concomitant]
     Active Substance: IBUPROFEN
     Indication: ANXIETY
  35. TYLENOL PM [Concomitant]
     Active Substance: ACETAMINOPHEN\DIPHENHYDRAMINE
     Indication: SLEEP DISORDER
  36. ASPIRIN. [Concomitant]
     Active Substance: ASPIRIN
     Indication: PROPHYLAXIS
  37. ASPIRIN. [Concomitant]
     Active Substance: ASPIRIN
     Indication: ANXIETY
  38. PROBIOTIC [Concomitant]
     Active Substance: PROBIOTICS NOS
     Indication: IMPAIRED GASTRIC EMPTYING
  39. AMITRIPTYLINE [Concomitant]
     Active Substance: AMITRIPTYLINE
     Indication: IRRITABLE BOWEL SYNDROME
  40. LOVASTATIN. [Concomitant]
     Active Substance: LOVASTATIN
     Indication: BLOOD CHOLESTEROL INCREASED
  41. ENALAPRIL [Concomitant]
     Active Substance: ENALAPRIL
     Indication: HYPERTENSION
  42. AMITRIPTYLINE [Concomitant]
     Active Substance: AMITRIPTYLINE
     Indication: DEPRESSION
  43. CETIRIZINE [Concomitant]
     Active Substance: CETIRIZINE HYDROCHLORIDE
     Indication: ANXIETY
  44. PRILOSEC [Concomitant]
     Active Substance: OMEPRAZOLE MAGNESIUM
     Indication: IRRITABLE BOWEL SYNDROME
  45. TRIAMCINOLONE ACETONIDE. [Concomitant]
     Active Substance: TRIAMCINOLONE ACETONIDE
     Indication: PSORIASIS
  46. VITAMIN B12 [Concomitant]
     Active Substance: CYANOCOBALAMIN
     Indication: VITAMIN SUPPLEMENTATION
  47. GAS-X [Concomitant]
     Active Substance: DIMETHICONE
     Indication: ANXIETY
  48. ALLOPURINOL. [Concomitant]
     Active Substance: ALLOPURINOL
     Indication: HYPERTENSION
  49. HYDROCHLOROTHIAZIDE. [Concomitant]
     Active Substance: HYDROCHLOROTHIAZIDE
     Indication: HYPERTENSION
  50. LOVASTATIN. [Concomitant]
     Active Substance: LOVASTATIN
     Indication: HYPERCHOLESTEROLAEMIA
  51. IRON [Concomitant]
     Active Substance: IRON
     Indication: ANXIETY
  52. CETIRIZINE [Concomitant]
     Active Substance: CETIRIZINE HYDROCHLORIDE
     Indication: SEASONAL ALLERGY
  53. VITAMIN C [Concomitant]
     Active Substance: ASCORBIC ACID
     Indication: ANXIETY
  54. ALLEGRA [Concomitant]
     Active Substance: FEXOFENADINE HYDROCHLORIDE
     Indication: SEASONAL ALLERGY
  55. FORTIFIED PROCAINE PENICILLIN [Concomitant]
     Indication: PRODUCT USED FOR UNKNOWN INDICATION

REACTIONS (13)
  - Intervertebral disc protrusion [Not Recovered/Not Resolved]
  - Condition aggravated [Not Recovered/Not Resolved]
  - Arthropathy [Recovered/Resolved]
  - Knee arthroplasty [Not Recovered/Not Resolved]
  - Spondylitis [Not Recovered/Not Resolved]
  - Scoliosis [Not Recovered/Not Resolved]
  - Knee arthroplasty [Recovered/Resolved]
  - Arthritis [Not Recovered/Not Resolved]
  - Hip arthroplasty [Recovered/Resolved]
  - Arthralgia [Not Recovered/Not Resolved]
  - Psoriasis [Not Recovered/Not Resolved]
  - Back disorder [Unknown]
  - Arthralgia [Not Recovered/Not Resolved]

NARRATIVE: CASE EVENT DATE: 2018
